FAERS Safety Report 16849847 (Version 1)
Quarter: 2019Q4

REPORT INFORMATION
  Report Type: Spontaneous
  Country: US (occurrence: US)
  Receive Date: 20190925
  Receipt Date: 20190925
  Transmission Date: 20200122
  Serious: Yes (Disabling)
  Sender: FDA-Public Use
  Company Number: None

PATIENT
  Age: 48 Year
  Sex: Female
  Weight: 50.85 kg

DRUGS (1)
  1. OCREVUS [Suspect]
     Active Substance: OCRELIZUMAB
     Indication: MULTIPLE SCLEROSIS
     Dosage: ?          OTHER ROUTE:INFUSION?
     Dates: start: 20180918

REACTIONS (6)
  - Hypersomnia [None]
  - Muscle tightness [None]
  - Dyspnoea [None]
  - Dyspnoea exertional [None]
  - Fatigue [None]
  - Chest discomfort [None]

NARRATIVE: CASE EVENT DATE: 20181002
